FAERS Safety Report 23409554 (Version 1)
Quarter: 2024Q1

REPORT INFORMATION
  Report Type: Spontaneous
  Country: FR (occurrence: FR)
  Receive Date: 20240117
  Receipt Date: 20240117
  Transmission Date: 20240409
  Serious: Yes (Life-Threatening, Other)
  Sender: FDA-Public Use
  Company Number: FR-AUROBINDO-AUR-APL-2023-059535

PATIENT
  Sex: Male

DRUGS (9)
  1. UNISOM SLEEPTABS [Suspect]
     Active Substance: DOXYLAMINE SUCCINATE
     Indication: Product used for unknown indication
     Dosage: 300 MG
     Route: 048
  2. TRAMADOL HYDROCHLORIDE [Suspect]
     Active Substance: TRAMADOL HYDROCHLORIDE
     Indication: Drug toxicity prophylaxis
     Dosage: UNK (ONE OR TWO TABLETS)
     Route: 048
  3. TRAMADOL HYDROCHLORIDE [Suspect]
     Active Substance: TRAMADOL HYDROCHLORIDE
     Dosage: UNK (ONE OR TWO TABLETS)
     Route: 048
     Dates: start: 20230819
  4. ZOPICLONE [Suspect]
     Active Substance: ZOPICLONE
     Indication: Product used for unknown indication
     Dosage: UNK (ONE BOX)
     Route: 048
  5. MIRTAZAPINE [Suspect]
     Active Substance: MIRTAZAPINE
     Indication: Product used for unknown indication
     Dosage: 900 MG
     Route: 048
  6. LORMETAZEPAM [Suspect]
     Active Substance: LORMETAZEPAM
     Indication: Sleep disorder
     Dosage: 140 MG
     Route: 048
  7. LORMETAZEPAM [Suspect]
     Active Substance: LORMETAZEPAM
     Dosage: 10 MG
     Route: 048
     Dates: start: 202307
  8. LORMETAZEPAM [Suspect]
     Active Substance: LORMETAZEPAM
     Dosage: 2 MG
     Route: 048
     Dates: start: 2019, end: 202307
  9. LORMETAZEPAM [Suspect]
     Active Substance: LORMETAZEPAM
     Dosage: 90 MG
     Route: 048
     Dates: start: 20230818

REACTIONS (14)
  - Poisoning deliberate [Unknown]
  - Suicide attempt [Recovered/Resolved]
  - Mental impairment [Not Recovered/Not Resolved]
  - Food aversion [Not Recovered/Not Resolved]
  - Balance disorder [Recovered/Resolved]
  - Bladder pain [Recovering/Resolving]
  - Headache [Recovering/Resolving]
  - Hypersomnia [Recovered/Resolved]
  - Micturition disorder [Recovered/Resolved]
  - Somnolence [Recovered/Resolved]
  - Intentional product use issue [Unknown]
  - Inappropriate schedule of product administration [Unknown]
  - Product use issue [Unknown]
  - Wrong technique in product usage process [Unknown]

NARRATIVE: CASE EVENT DATE: 20190101
